FAERS Safety Report 24136709 (Version 2)
Quarter: 2024Q3

REPORT INFORMATION
  Report Type: Spontaneous
  Country: CH (occurrence: CH)
  Receive Date: 20240725
  Receipt Date: 20240913
  Transmission Date: 20241017
  Serious: Yes (Hospitalization, Other)
  Sender: TAKEDA
  Company Number: CH-TAKEDA-2024TUS068267

PATIENT
  Age: 68 Year
  Sex: Male
  Weight: 90 kg

DRUGS (2)
  1. FEBUXOSTAT [Suspect]
     Active Substance: FEBUXOSTAT
     Indication: Gout
     Dosage: 80 MILLIGRAM
     Route: 048
     Dates: start: 20231106, end: 20231223
  2. FEBUXOSTAT [Suspect]
     Active Substance: FEBUXOSTAT
     Dosage: 40 MILLIGRAM, QD
     Route: 048
     Dates: start: 202312

REACTIONS (5)
  - Acute kidney injury [Unknown]
  - Tubulointerstitial nephritis [Unknown]
  - Product use in unapproved indication [Recovered/Resolved]
  - Lip swelling [Unknown]
  - Hypersensitivity [Unknown]

NARRATIVE: CASE EVENT DATE: 20231201
